FAERS Safety Report 17323941 (Version 2)
Quarter: 2020Q1

REPORT INFORMATION
  Report Type: Spontaneous
  Country: JP (occurrence: JP)
  Receive Date: 20200127
  Receipt Date: 20200129
  Transmission Date: 20200409
  Serious: Yes (Death, Other)
  Sender: FDA-Public Use
  Company Number: JP-AUROBINDO-AUR-APL-2019-046727

PATIENT
  Age: 63 Year
  Sex: Male

DRUGS (7)
  1. FOLOTYN [Suspect]
     Active Substance: PRALATREXATE
     Indication: ANGIOIMMUNOBLASTIC T-CELL LYMPHOMA
     Dosage: 30 MG/M2, UNK
     Route: 042
     Dates: start: 20170922, end: 20170929
  2. FOLOTYN [Suspect]
     Active Substance: PRALATREXATE
     Dosage: 20 MILLIGRAM/SQ. METER, EVERY OTHER WEEK
     Route: 042
     Dates: start: 20180529, end: 201806
  3. FOLOTYN [Suspect]
     Active Substance: PRALATREXATE
     Dosage: 20 MILLIGRAM/SQ. METER, EVERY OTHER WEEK
     Route: 042
     Dates: start: 20180109, end: 20180123
  4. FOLOTYN [Suspect]
     Active Substance: PRALATREXATE
     Dosage: 20 MILLIGRAM/SQ. METER, EVERY OTHER WEEK
     Route: 042
     Dates: start: 20180227, end: 20180313
  5. FOLOTYN [Suspect]
     Active Substance: PRALATREXATE
     Dosage: 20 MILLIGRAM/SQ. METER, EVERY OTHER WEEK
     Route: 042
     Dates: start: 20180403, end: 20180515
  6. FOLOTYN [Suspect]
     Active Substance: PRALATREXATE
     Dosage: 30 MILLIGRAM/SQ. METER
     Route: 042
     Dates: start: 20170929
  7. FOLOTYN [Suspect]
     Active Substance: PRALATREXATE
     Dosage: 20 MILLIGRAM/SQ. METER, EVERY OTHER WEEK
     Route: 042
     Dates: start: 20171107, end: 20171205

REACTIONS (9)
  - Bone marrow failure [Recovered/Resolved]
  - Therapeutic response decreased [Fatal]
  - Skin disorder [Recovered/Resolved]
  - Dermatitis exfoliative generalised [Recovering/Resolving]
  - Stomatitis [Unknown]
  - Erythema multiforme [Unknown]
  - Platelet count decreased [Recovered/Resolved]
  - Malignant neoplasm progression [Fatal]
  - Neutrophil count decreased [Unknown]

NARRATIVE: CASE EVENT DATE: 20170926
